FAERS Safety Report 5397486-5 (Version None)
Quarter: 2007Q3

REPORT INFORMATION
  Report Type: 
  Country: None (occurrence: None)
  Receive Date: 20070723
  Receipt Date: 20070723
  Transmission Date: 20080115
  Serious: No
  Sender: FDA-Public Use
  Company Number: None

PATIENT
  Age: 59 Year
  Sex: Female
  Weight: 76.6579 kg

DRUGS (1)
  1. FENTANYL [Suspect]
     Dosage: ONE EVERY 3 DAYS

REACTIONS (2)
  - APPLICATION SITE RASH [None]
  - RASH [None]
